FAERS Safety Report 4530666-7 (Version None)
Quarter: 2004Q4

REPORT INFORMATION
  Report Type: 
  Country: None (occurrence: None)
  Receive Date: 20041216
  Receipt Date: 20041126
  Transmission Date: 20050328
  Serious: Yes (Other)
  Sender: FDA-Public Use
  Company Number: US_0411108686

PATIENT
  Age: 2 Year
  Sex: Male

DRUGS (1)
  1. CEFACLOR [Suspect]
     Dates: start: 20021001, end: 20021001

REACTIONS (1)
  - STEVENS-JOHNSON SYNDROME [None]
